FAERS Safety Report 25901046 (Version 1)
Quarter: 2025Q4

REPORT INFORMATION
  Report Type: Spontaneous
  Country: IN (occurrence: IN)
  Receive Date: 20251009
  Receipt Date: 20251009
  Transmission Date: 20260117
  Serious: Yes (Other)
  Sender: RANBAXY
  Company Number: IN-MLMSERVICE-20170228-0629591-1

PATIENT
  Age: 43 Year
  Sex: Male
  Weight: 50 kg

DRUGS (4)
  1. METRONIDAZOLE [Suspect]
     Active Substance: METRONIDAZOLE
     Indication: Abdominal pain
     Dosage: UNK 400 MG 8 HOURLY
     Route: 065
  2. METRONIDAZOLE [Suspect]
     Active Substance: METRONIDAZOLE
     Indication: Diarrhoea
  3. NORFLOXACIN [Suspect]
     Active Substance: NORFLOXACIN
     Indication: Diarrhoea
     Dosage: UNK 400 MG 12 HOURLY
     Route: 065
  4. NORFLOXACIN [Suspect]
     Active Substance: NORFLOXACIN
     Indication: Abdominal pain

REACTIONS (2)
  - Fixed eruption [Recovered/Resolved]
  - Rash erythematous [Recovered/Resolved]
